FAERS Safety Report 10235855 (Version 1)
Quarter: 2014Q2

REPORT INFORMATION
  Report Type: Spontaneous
  Country: NL (occurrence: NL)
  Receive Date: 20140613
  Receipt Date: 20140613
  Transmission Date: 20141212
  Serious: Yes (Life-Threatening, Hospitalization)
  Sender: FDA-Public Use
  Company Number: NL-TEVA-486761ISR

PATIENT
  Age: 79 Year
  Sex: Female
  Weight: 68 kg

DRUGS (2)
  1. METFORMINE HYDROCHLORIDE [Suspect]
     Indication: TYPE 2 DIABETES MELLITUS
     Dosage: 2 DOSAGE FORMS DAILY; TWICE DAILY ONE PIECE
     Route: 048
     Dates: start: 1994
  2. PARACETAMOL TABLET 500MG [Concomitant]
     Dosage: EXTRA INFO:AS REQUIRED
     Route: 048
     Dates: start: 2012

REACTIONS (1)
  - Metabolic acidosis [Recovered/Resolved]
